FAERS Safety Report 4596267-X (Version None)
Quarter: 2005Q1

REPORT INFORMATION
  Report Type: 
  Country: None (occurrence: None)
  Receive Date: 20050224
  Receipt Date: 20050214
  Transmission Date: 20050727
  Serious: Yes (Life-Threatening, Hospitalization)
  Sender: FDA-Public Use
  Company Number: PL-2005-002099

PATIENT
  Age: 31 Year
  Sex: Female

DRUGS (1)
  1. ULTRAVIST 300 [Suspect]
     Indication: SPINAL MYELOGRAM
     Dosage: 10 ML, 1 DOSE, INTRATHECAL
     Route: 037
     Dates: start: 20050210, end: 20050210

REACTIONS (6)
  - CONVULSION [None]
  - DRUG TOXICITY [None]
  - LOSS OF CONSCIOUSNESS [None]
  - POOR PERIPHERAL CIRCULATION [None]
  - PRURITUS [None]
  - RASH MACULAR [None]
